FAERS Safety Report 9320821 (Version 1)
Quarter: 2013Q2

REPORT INFORMATION
  Report Type: Spontaneous
  Country: IT (occurrence: None)
  Receive Date: 20130528
  Receipt Date: 20130528
  Transmission Date: 20140414
  Serious: Yes (Life-Threatening)
  Sender: FDA-Public Use
  Company Number: 2012AP000488

PATIENT
  Age: 23 Year
  Sex: Male

DRUGS (1)
  1. FERRIPROX [Suspect]
     Indication: HAEMOSIDEROSIS
     Route: 048
     Dates: start: 20111216, end: 20111230

REACTIONS (2)
  - Agranulocytosis [None]
  - Pyrexia [None]
